FAERS Safety Report 6194216-4 (Version None)
Quarter: 2009Q2

REPORT INFORMATION
  Report Type: 
  Country: None (occurrence: None)
  Receive Date: 20090515
  Receipt Date: 20090515
  Transmission Date: 20091009
  Serious: Yes (Other)
  Sender: FDA-Public Use
  Company Number: None

PATIENT
  Sex: Female

DRUGS (2)
  1. HYDROCODONE BITARTRATE + IBUPROFEN [Suspect]
     Indication: ARTHRALGIA
     Dosage: TWICE 4 TIMES DAILY TWO 4 TIMES DAILY ORAL EVERYDAY
     Route: 048
  2. HYDROCODONE BITARTRATE + IBUPROFEN [Suspect]
     Indication: FIBROMYALGIA
     Dosage: TWICE 4 TIMES DAILY TWO 4 TIMES DAILY ORAL EVERYDAY
     Route: 048

REACTIONS (4)
  - ABDOMINAL PAIN UPPER [None]
  - DRUG INEFFECTIVE [None]
  - GASTRIC DISORDER [None]
  - PAIN [None]
